FAERS Safety Report 4335439-6 (Version None)
Quarter: 2004Q2

REPORT INFORMATION
  Report Type: 
  Country: None (occurrence: None)
  Receive Date: 20040408
  Receipt Date: 20040408
  Transmission Date: 20050107
  Serious: Yes (Hospitalization)
  Sender: FDA-Public Use
  Company Number: None

PATIENT
  Sex: Female

DRUGS (2)
  1. DILANTIN KAPSEAL [Suspect]
     Dosage: 200MG/300MG QAM/QPM ORAL
     Route: 048
  2. PHENYTOIN SODIUM EXTENDED [Suspect]
     Dosage: 200MG/300MG  QAM/QPM ORAL
     Route: 048
     Dates: start: 20030615, end: 20030807

REACTIONS (3)
  - CONVULSION [None]
  - DRUG LEVEL DECREASED [None]
  - PHARMACEUTICAL PRODUCT COMPLAINT [None]
